FAERS Safety Report 6197640-9 (Version None)
Quarter: 2009Q2

REPORT INFORMATION
  Report Type: 
  Country: None (occurrence: None)
  Receive Date: 20090518
  Receipt Date: 20090504
  Transmission Date: 20091009
  Serious: Yes (Other)
  Sender: FDA-Public Use
  Company Number: 09-000708

PATIENT
  Age: 45 Year
  Sex: Female
  Weight: 54.4 kg

DRUGS (2)
  1. LOESTRIN 24 FE [Suspect]
     Indication: UTERINE LEIOMYOMA
     Dosage: 20/1000 UG, QD, ORAL
     Route: 048
     Dates: start: 20090317, end: 20090430
  2. KLONOPIN [Concomitant]

REACTIONS (6)
  - BLOOD PRESSURE INCREASED [None]
  - FLUID RETENTION [None]
  - INCISION SITE COMPLICATION [None]
  - PRECANCEROUS SKIN LESION [None]
  - WEIGHT INCREASED [None]
  - WOUND SECRETION [None]
